FAERS Safety Report 5194474-9 (Version None)
Quarter: 2006Q4

REPORT INFORMATION
  Report Type: 
  Country: None (occurrence: None)
  Receive Date: 20061215
  Receipt Date: 20061205
  Transmission Date: 20070319
  Serious: No
  Sender: FDA-Public Use
  Company Number: 2006-151548-NL

PATIENT
  Sex: Female

DRUGS (6)
  1. FOLLITROPIN BETA [Suspect]
     Indication: OVARIAN DISORDER
     Dosage: 150 IU
  2. CHORIONIC GONADOTROPIN [Suspect]
     Indication: LUTEAL PHASE DEFICIENCY
     Dosage: 1500 IU
  3. BUSERELIN ACETATE [Suspect]
     Indication: HYPOTHALAMO-PITUITARY DISORDERS
     Dosage: 800 UG
     Route: 045
  4. MENOTROPINS [Suspect]
     Indication: OVARIAN DISORDER
     Dosage: 150 IU
     Route: 030
  5. CHORIONIC GONADOTROPIN [Suspect]
  6. PROGESTERONE [Suspect]
     Indication: LUTEAL PHASE DEFICIENCY
     Dosage: 25 MG
     Route: 030

REACTIONS (3)
  - DRUG EXPOSURE BEFORE PREGNANCY [None]
  - ECTOPIC PREGNANCY [None]
  - OVARIAN HYPERSTIMULATION SYNDROME [None]
